FAERS Safety Report 13181070 (Version 1)
Quarter: 2017Q1

REPORT INFORMATION
  Report Type: Spontaneous
  Country: US (occurrence: US)
  Receive Date: 20170202
  Receipt Date: 20170202
  Transmission Date: 20170428
  Serious: No
  Sender: FDA-Public Use
  Company Number: US-SMITH AND NEPHEW, INC-2016SMT00597

PATIENT
  Sex: Male

DRUGS (1)
  1. REGRANEX [Suspect]
     Active Substance: BECAPLERMIN
     Dosage: UNK, EVERY 48 HOURS
     Route: 061
     Dates: start: 201606

REACTIONS (2)
  - Inappropriate schedule of drug administration [Unknown]
  - Pain [Unknown]

NARRATIVE: CASE EVENT DATE: 2016
